FAERS Safety Report 4595509-4 (Version None)
Quarter: 2005Q1

REPORT INFORMATION
  Report Type: 
  Country: None (occurrence: None)
  Receive Date: 20050224
  Receipt Date: 20050208
  Transmission Date: 20050727
  Serious: Yes (Hospitalization, Other)
  Sender: FDA-Public Use
  Company Number: USA050290475

PATIENT
  Age: 83 Year
  Sex: Male

DRUGS (10)
  1. CYMBALTA [Suspect]
     Dosage: 30 MG
     Dates: start: 20050114, end: 20050125
  2. ZOCOR (SIMVASTATIN RATIOPHARM) [Concomitant]
  3. ZESTRIL [Concomitant]
  4. AMIODARONE [Concomitant]
  5. LASIX [Concomitant]
  6. SYNTHROID [Concomitant]
  7. FOSAMAX [Concomitant]
  8. ASPIRIN [Concomitant]
  9. DARVOCET-N 100 [Concomitant]
  10. OSTEO BI-FLEX [Concomitant]

REACTIONS (12)
  - ALANINE AMINOTRANSFERASE INCREASED [None]
  - AMMONIA INCREASED [None]
  - ASPARTATE AMINOTRANSFERASE INCREASED [None]
  - BLOOD BILIRUBIN INCREASED [None]
  - BLOOD CREATINE PHOSPHOKINASE INCREASED [None]
  - BLOOD CREATINE PHOSPHOKINASE MB INCREASED [None]
  - CARDIAC OUTPUT DECREASED [None]
  - DISORIENTATION [None]
  - GAIT DISTURBANCE [None]
  - INCOHERENT [None]
  - INSOMNIA [None]
  - RESTLESS LEGS SYNDROME [None]
